FAERS Safety Report 10890200 (Version 1)
Quarter: 2015Q1

REPORT INFORMATION
  Report Type: Spontaneous
  Country: US (occurrence: US)
  Receive Date: 20150305
  Receipt Date: 20150305
  Transmission Date: 20150721
  Serious: No
  Sender: FDA-Public Use
  Company Number: US-PFIZER INC-2015075730

PATIENT
  Sex: Female

DRUGS (2)
  1. CELEBREX [Suspect]
     Active Substance: CELECOXIB
     Indication: PAIN
     Dosage: UNK
  2. LYRICA [Suspect]
     Active Substance: PREGABALIN
     Indication: PAIN
     Dosage: 100 MG, AS NEEDED (TWICE A DAY AND SOMETIMES THREE TIMES A DAY)

REACTIONS (4)
  - Drug ineffective [Unknown]
  - Burning sensation [Unknown]
  - Insomnia [Unknown]
  - Muscle spasms [Unknown]
